FAERS Safety Report 4274634-1 (Version None)
Quarter: 2004Q1

REPORT INFORMATION
  Report Type: 
  Country: None (occurrence: None)
  Receive Date: 20040120
  Receipt Date: 20040120
  Transmission Date: 20041129
  Serious: Yes (Disabling)
  Sender: FDA-Public Use
  Company Number: None

PATIENT
  Age: 38 Year
  Sex: Male
  Weight: 102.0593 kg

DRUGS (1)
  1. TRICOR [Suspect]
     Indication: BLOOD TRIGLYCERIDES INCREASED
     Dosage: 1/DAY
     Dates: start: 20021125, end: 20030125

REACTIONS (3)
  - DEAFNESS NEUROSENSORY [None]
  - SUDDEN HEARING LOSS [None]
  - TINNITUS [None]
